FAERS Safety Report 5978875-4 (Version None)
Quarter: 2008Q4

REPORT INFORMATION
  Report Type: 
  Country: None (occurrence: None)
  Receive Date: 20081204
  Receipt Date: 20081124
  Transmission Date: 20090506
  Serious: Yes (Other)
  Sender: FDA-Public Use
  Company Number: DE-ELI_LILLY_AND_COMPANY-DE200811005951

PATIENT
  Sex: Female

DRUGS (3)
  1. HUMALOG [Suspect]
  2. HUMALOG [Suspect]
     Dosage: 5 IU, UNK
     Dates: start: 20081029, end: 20081029
  3. HUMALOG [Suspect]
     Dosage: 8 IU, UNK
     Dates: start: 20081029, end: 20081029

REACTIONS (4)
  - BLOOD GLUCOSE INCREASED [None]
  - MALAISE [None]
  - MYALGIA [None]
  - VOMITING [None]
